FAERS Safety Report 25469041 (Version 1)
Quarter: 2025Q2

REPORT INFORMATION
  Report Type: Spontaneous
  Country: US (occurrence: US)
  Receive Date: 20250623
  Receipt Date: 20250623
  Transmission Date: 20250717
  Serious: No
  Sender: BAYER HEALTHCARE LLC
  Company Number: US-BAYER-2025A082931

PATIENT

DRUGS (2)
  1. LOTRIMIN ULTRA RINGWORM [Suspect]
     Active Substance: BUTENAFINE HYDROCHLORIDE
     Indication: Tinea infection
  2. LOTRIMIN ULTRA ATHLETES FOOT [Suspect]
     Active Substance: BUTENAFINE HYDROCHLORIDE
     Indication: Tinea infection

REACTIONS (1)
  - Drug ineffective [Unknown]
